FAERS Safety Report 6298038-5 (Version None)
Quarter: 2009Q3

REPORT INFORMATION
  Report Type: 
  Country: None (occurrence: None)
  Receive Date: 20090805
  Receipt Date: 20090729
  Transmission Date: 20100115
  Serious: Yes (Hospitalization)
  Sender: FDA-Public Use
  Company Number: US-ELI_LILLY_AND_COMPANY-US200907006719

PATIENT
  Sex: Female

DRUGS (4)
  1. HUMALOG [Suspect]
  2. HUMALOG [Suspect]
  3. LANTUS [Concomitant]
  4. ANTIVERT /00007101/ [Concomitant]

REACTIONS (6)
  - CEREBROVASCULAR ACCIDENT [None]
  - DIZZINESS [None]
  - GAIT DISTURBANCE [None]
  - INNER EAR DISORDER [None]
  - INTERCEPTED DRUG DISPENSING ERROR [None]
  - PRODUCT QUALITY ISSUE [None]
